FAERS Safety Report 14548309 (Version 2)
Quarter: 2018Q1

REPORT INFORMATION
  Report Type: Spontaneous
  Country: US (occurrence: US)
  Receive Date: 20180219
  Receipt Date: 20180321
  Transmission Date: 20180509
  Serious: Yes (Hospitalization, Other)
  Sender: FDA-Public Use
  Company Number: US-MYLANLABS-2018M1010935

PATIENT
  Age: 68 Year
  Sex: Male
  Weight: 90 kg

DRUGS (1)
  1. NAFCILLIN [Suspect]
     Active Substance: NAFCILLIN\NAFCILLIN SODIUM
     Indication: ANTIBIOTIC THERAPY
     Dosage: HE HAD BEEN ON ANTIBIOTIC THERAPY FOR 4 WEEKS AT THE TIME OF PRESENTATION; THE DRUG WAS DISCONTIN...
     Route: 042

REACTIONS (3)
  - Hepatic failure [Recovered/Resolved]
  - Weight decreased [Unknown]
  - Drug-induced liver injury [Recovered/Resolved]
